FAERS Safety Report 13771185 (Version 1)
Quarter: 2017Q3

REPORT INFORMATION
  Report Type: Spontaneous
  Country: US (occurrence: US)
  Receive Date: 20170720
  Receipt Date: 20170720
  Transmission Date: 20171127
  Serious: Yes (Disabling)
  Sender: FDA-Public Use
  Company Number: None

PATIENT
  Age: 57 Year
  Sex: Female
  Weight: 72 kg

DRUGS (7)
  1. VITAMIN B6 [Concomitant]
     Active Substance: PYRIDOXINE HYDROCHLORIDE
  2. VITAMIN D3 [Concomitant]
     Active Substance: CHOLECALCIFEROL
  3. LORATADINE. [Concomitant]
     Active Substance: LORATADINE
  4. TUMS [Concomitant]
     Active Substance: CALCIUM CARBONATE
  5. TRIAMCINOLONE ACETONIDE. [Suspect]
     Active Substance: TRIAMCINOLONE ACETONIDE
     Indication: SINUSITIS
     Dosage: ?          OTHER STRENGTH:UGM;QUANTITY:2 SPRAY(S);?
     Route: 055
     Dates: start: 20170701, end: 20170713
  6. PREDNISONE. [Concomitant]
     Active Substance: PREDNISONE
  7. JUICE PLUS [Concomitant]
     Active Substance: DIETARY SUPPLEMENT

REACTIONS (3)
  - Anosmia [None]
  - Ageusia [None]
  - Bronchitis [None]

NARRATIVE: CASE EVENT DATE: 20170703
